FAERS Safety Report 8561835 (Version 4)
Quarter: 2014Q1

REPORT INFORMATION
  Report Type: Spontaneous
  Country: US (occurrence: US)
  Receive Date: 20120515
  Receipt Date: 20140224
  Transmission Date: 20141002
  Serious: Yes (Hospitalization, Other)
  Sender: FDA-Public Use
  Company Number: US-ELI_LILLY_AND_COMPANY-US201205002593

PATIENT
  Age: 74 Year
  Sex: Female
  Weight: 58.5 kg

DRUGS (11)
  1. HUMALOG 25% LISPRO, 75% NPL [Suspect]
     Indication: TYPE 2 DIABETES MELLITUS
     Dosage: 25 U, EACH MORNING
     Route: 065
     Dates: start: 201201
  2. HUMALOG 25% LISPRO, 75% NPL [Suspect]
     Dosage: 18 U, EACH EVENING
     Route: 065
     Dates: start: 201201
  3. HUMALOG 25% LISPRO, 75% NPL [Suspect]
     Dosage: 25 U, EACH MORNING
     Route: 065
     Dates: start: 201301
  4. HUMALOG 25% LISPRO, 75% NPL [Suspect]
     Dosage: 18 U, EACH EVENING
     Route: 065
     Dates: start: 201301
  5. GLYBURIDE [Concomitant]
     Indication: DIABETES MELLITUS
  6. PLAVIX [Concomitant]
  7. VALIUM [Concomitant]
  8. CELEXA [Concomitant]
  9. SIMVASTATIN [Concomitant]
  10. PRILOSEC                           /00661201/ [Concomitant]
  11. LISINOPRIL [Concomitant]

REACTIONS (14)
  - Humerus fracture [Recovered/Resolved]
  - Loss of consciousness [Recovered/Resolved]
  - Fall [Recovered/Resolved]
  - Eye injury [Unknown]
  - Blood glucose fluctuation [Recovered/Resolved]
  - Blood glucose increased [Recovered/Resolved]
  - Psychiatric symptom [Recovered/Resolved]
  - Weight decreased [Recovered/Resolved]
  - Confusional state [Recovered/Resolved]
  - Feeling abnormal [Recovered/Resolved]
  - Stress [Recovered/Resolved]
  - Blood glucose abnormal [Recovered/Resolved]
  - Incorrect product storage [Recovered/Resolved]
  - Incorrect dose administered [Unknown]
